FAERS Safety Report 15995444 (Version 4)
Quarter: 2019Q2

REPORT INFORMATION
  Report Type: Report from Study
  Country: US (occurrence: US)
  Receive Date: 20190222
  Receipt Date: 20190513
  Transmission Date: 20190711
  Serious: Yes (Hospitalization, Other)
  Sender: FDA-Public Use
  Company Number: US-GILEAD-2018-0375179

PATIENT
  Age: 38 Year
  Sex: Female

DRUGS (8)
  1. AMBRISENTAN [Suspect]
     Active Substance: AMBRISENTAN
     Dosage: 10 MG, BID
     Route: 065
     Dates: start: 20190131, end: 20190131
  2. SILDENAFIL. [Concomitant]
     Active Substance: SILDENAFIL
  3. ADEMPAS [Concomitant]
     Active Substance: RIOCIGUAT
     Dosage: 0.5 MG
  4. XARELTO [Concomitant]
     Active Substance: RIVAROXABAN
  5. WARFARIN [Concomitant]
     Active Substance: WARFARIN
  6. REMODULIN [Concomitant]
     Active Substance: TREPROSTINIL
  7. AMBRISENTAN [Suspect]
     Active Substance: AMBRISENTAN
     Indication: PRODUCT USED FOR UNKNOWN INDICATION
     Dosage: 10 MG, QD
     Route: 065
     Dates: start: 20090121
  8. ORENITRAM [Concomitant]
     Active Substance: TREPROSTINIL
     Dosage: 9.25 MG, TID

REACTIONS (16)
  - Migraine [Not Recovered/Not Resolved]
  - Insomnia [Unknown]
  - Blood pressure abnormal [Unknown]
  - Diarrhoea [Not Recovered/Not Resolved]
  - Infusion site pain [Unknown]
  - Nausea [Not Recovered/Not Resolved]
  - Headache [Not Recovered/Not Resolved]
  - Flushing [Not Recovered/Not Resolved]
  - Overdose [Recovered/Resolved]
  - Productive cough [Unknown]
  - Palpitations [Unknown]
  - Dizziness [Unknown]
  - Hypotension [Not Recovered/Not Resolved]
  - Clostridium difficile infection [Unknown]
  - Condition aggravated [Not Recovered/Not Resolved]
  - Pain in jaw [Not Recovered/Not Resolved]

NARRATIVE: CASE EVENT DATE: 20190131
